FAERS Safety Report 8791114 (Version 1)
Quarter: 2012Q4

REPORT INFORMATION
  Report Type: Spontaneous
  Country: US (occurrence: None)
  Receive Date: 20120913
  Receipt Date: 20120913
  Transmission Date: 20130627
  Serious: Yes (Other)
  Sender: FDA-Public Use
  Company Number: None

PATIENT
  Age: 57 Year
  Sex: Female
  Weight: 54.43 kg

DRUGS (1)
  1. ATORVASTATIN 20MG [Suspect]
     Indication: CHOLESTEROL BLOOD INCREASED
     Dates: start: 20120805, end: 20120912

REACTIONS (4)
  - Feeling abnormal [None]
  - Sensation of heaviness [None]
  - Arthralgia [None]
  - Myalgia [None]
